FAERS Safety Report 10079742 (Version 1)
Quarter: 2014Q2

REPORT INFORMATION
  Report Type: Spontaneous
  Country: US (occurrence: US)
  Receive Date: 20140415
  Receipt Date: 20140415
  Transmission Date: 20141212
  Serious: Yes (Hospitalization)
  Sender: FDA-Public Use
  Company Number: US-GLAXOSMITHKLINE-A1068695A

PATIENT
  Age: 70 Year
  Sex: Male

DRUGS (2)
  1. PROPAFENONE HYDROCHLORIDE [Suspect]
     Indication: ATRIAL FIBRILLATION
     Route: 065
     Dates: start: 2006, end: 2006
  2. RYTHMOL [Concomitant]

REACTIONS (1)
  - Discomfort [Unknown]
